FAERS Safety Report 20998632 (Version 1)
Quarter: 2022Q2

REPORT INFORMATION
  Report Type: Spontaneous
  Country: US (occurrence: None)
  Receive Date: 20220623
  Receipt Date: 20220623
  Transmission Date: 20220721
  Serious: No
  Sender: FDA-Public Use
  Company Number: None

PATIENT
  Sex: Male

DRUGS (1)
  1. SIMPONI [Suspect]
     Active Substance: GOLIMUMAB
     Indication: Spinal osteoarthritis
     Dosage: 50MG ONCE EVERY 4 WEEKS UNDER THE SKIN?
     Route: 058
     Dates: start: 20220301

REACTIONS (3)
  - Therapy non-responder [None]
  - Therapeutic product effect delayed [None]
  - Symptom recurrence [None]
